FAERS Safety Report 6273902-1 (Version None)
Quarter: 2009Q3

REPORT INFORMATION
  Report Type: 
  Country: None (occurrence: None)
  Receive Date: 20090715
  Receipt Date: 20090706
  Transmission Date: 20100115
  Serious: Yes (Other)
  Sender: FDA-Public Use
  Company Number: LTI2009A00186

PATIENT
  Age: 49 Year
  Sex: Female

DRUGS (2)
  1. ACTOPLUS MET [Suspect]
     Indication: TYPE 2 DIABETES MELLITUS
     Dosage: 1 TAB. (1 TAB.,2 IN 1 D) ORAL
     Route: 048
     Dates: start: 20090303, end: 20090511
  2. JANUVIA (SITAGLIPTINE) [Concomitant]

REACTIONS (6)
  - CHOLANGITIS [None]
  - DECREASED APPETITE [None]
  - NAUSEA [None]
  - PRURITUS [None]
  - ULTRASOUND ABDOMEN ABNORMAL [None]
  - WEIGHT DECREASED [None]
